FAERS Safety Report 15368372 (Version 1)
Quarter: 2018Q3

REPORT INFORMATION
  Report Type: Spontaneous
  Country: US (occurrence: US)
  Receive Date: 20180910
  Receipt Date: 20180910
  Transmission Date: 20181010
  Serious: Yes (Other)
  Sender: FDA-Public Use
  Company Number: US-GILEAD-2018-0361483

PATIENT
  Age: 68 Year
  Sex: Male
  Weight: 76.1 kg

DRUGS (1)
  1. YESCARTA [Suspect]
     Active Substance: AXICABTAGENE CILOLEUCEL
     Indication: DIFFUSE LARGE B-CELL LYMPHOMA
     Dosage: UNK
     Route: 065
     Dates: start: 20180702, end: 20180702

REACTIONS (14)
  - Tremor [Unknown]
  - Somnolence [Unknown]
  - Disorientation [Unknown]
  - Aphasia [Unknown]
  - Bradycardia [Unknown]
  - Confusional state [Unknown]
  - Memory impairment [Unknown]
  - Incontinence [Unknown]
  - Agitation [Unknown]
  - Pyrexia [Unknown]
  - Fatigue [Unknown]
  - Cytokine release syndrome [Unknown]
  - Hypotension [Recovering/Resolving]
  - Encephalopathy [Unknown]

NARRATIVE: CASE EVENT DATE: 20180703
